FAERS Safety Report 8985531 (Version 1)
Quarter: 2012Q4

REPORT INFORMATION
  Report Type: 
  Country: CH (occurrence: CH)
  Receive Date: 20121226
  Receipt Date: 20121226
  Transmission Date: 20130627
  Serious: Yes (Hospitalization)
  Sender: FDA-Public Use
  Company Number: CH-ASTRAZENECA-2012SE93735

PATIENT
  Age: 34 Year
  Sex: Male
  Weight: 62.9 kg

DRUGS (10)
  1. SEROQUEL XR [Suspect]
     Indication: MOOD DISORDER DUE TO A GENERAL MEDICAL CONDITION
     Route: 048
     Dates: start: 20120925, end: 20121014
  2. NORVIR [Interacting]
     Indication: HIV INFECTION
     Route: 048
     Dates: start: 20121002
  3. DARAPRIM [Suspect]
     Indication: CEREBRAL TOXOPLASMOSIS
     Route: 048
     Dates: start: 20120920
  4. SULFADIAZIN HEYL [Suspect]
     Indication: CEREBRAL TOXOPLASMOSIS
     Route: 048
     Dates: start: 201209, end: 20121005
  5. KEPPRA [Concomitant]
     Indication: EPILEPSY
     Route: 048
     Dates: start: 20120915, end: 20121026
  6. LEUKOVORIN [Concomitant]
     Indication: PROPHYLAXIS
     Route: 048
     Dates: start: 20120920
  7. PREZISTA [Concomitant]
     Indication: HIV INFECTION
     Route: 048
     Dates: start: 20121002
  8. KIVEXA [Concomitant]
     Indication: HIV INFECTION
     Route: 048
     Dates: start: 20121005
  9. COMBIVIR [Concomitant]
     Indication: HIV INFECTION
     Route: 048
     Dates: start: 20121002, end: 20121005
  10. CLINDAMYCIN [Concomitant]
     Indication: HEPATIC ENZYME INCREASED
     Route: 048
     Dates: start: 20121005, end: 20121026

REACTIONS (4)
  - Drug interaction [Unknown]
  - Pancytopenia [Recovering/Resolving]
  - Liver injury [Recovering/Resolving]
  - Drug level increased [Unknown]
